FAERS Safety Report 4647442-7 (Version None)
Quarter: 2005Q2

REPORT INFORMATION
  Report Type: 
  Country: None (occurrence: None)
  Receive Date: 20050428
  Receipt Date: 20050422
  Transmission Date: 20051028
  Serious: Yes (Death)
  Sender: FDA-Public Use
  Company Number: ES-JNJFOC-20050405204

PATIENT
  Age: 54 Year

DRUGS (4)
  1. DURAGESIC-100 [Suspect]
     Route: 062
  2. DURAGESIC-100 [Suspect]
     Indication: PAIN
     Route: 062
  3. FENTANYL [Concomitant]
     Route: 065
  4. FENTANYL [Concomitant]
     Indication: PAIN
     Dosage: ON DEMAND.
     Route: 065

REACTIONS (5)
  - CONSTIPATION [None]
  - DISORIENTATION [None]
  - METASTASES TO CENTRAL NERVOUS SYSTEM [None]
  - NAUSEA [None]
  - SOMNOLENCE [None]
